FAERS Safety Report 7069298-8 (Version None)
Quarter: 2010Q4

REPORT INFORMATION
  Report Type: 
  Country: None (occurrence: None)
  Receive Date: 20101028
  Receipt Date: 20101015
  Transmission Date: 20110411
  Serious: Yes (Death, Congenital Anomaly)
  Sender: FDA-Public Use
  Company Number: GB-MYLANLABS-2010S1018930

PATIENT

DRUGS (4)
  1. ALENDRONIC ACID [Suspect]
     Route: 064
  2. AZATHIOPRINE [Suspect]
     Route: 064
  3. ASPIRIN [Concomitant]
     Indication: DRUG EXPOSURE DURING PREGNANCY
     Route: 064
  4. FOLIC ACID [Concomitant]
     Indication: DRUG EXPOSURE DURING PREGNANCY
     Route: 064

REACTIONS (2)
  - CLEFT LIP AND PALATE [None]
  - DRUG EXPOSURE DURING PREGNANCY [None]
